FAERS Safety Report 5018153-3 (Version None)
Quarter: 2006Q2

REPORT INFORMATION
  Report Type: 
  Country: None (occurrence: None)
  Receive Date: 20060605
  Receipt Date: 20060525
  Transmission Date: 20061013
  Serious: Yes (Hospitalization)
  Sender: FDA-Public Use
  Company Number: US-JNJFOC-20060301951

PATIENT
  Sex: Male
  Weight: 81.65 kg

DRUGS (7)
  1. DURAGESIC-100 [Suspect]
     Route: 062
  2. DURAGESIC-100 [Suspect]
     Route: 062
  3. DURAGESIC-100 [Suspect]
     Indication: PAIN
     Dosage: ONE 100 UG/HR PATCH PLUS ONE 25 UG/HR PATCH IN 48 HOURS
     Route: 062
  4. LIPITOR [Concomitant]
     Indication: HYPERLIPIDAEMIA
  5. HYDROCHLOROTHIAZIDE [Concomitant]
     Indication: HYPERTENSION
  6. PROVIGIL [Concomitant]
     Indication: FATIGUE
  7. WELLBUTRIN XL [Concomitant]
     Indication: SMOKING CESSATION THERAPY

REACTIONS (7)
  - ASTHENIA [None]
  - BACK PAIN [None]
  - BLOOD CHOLESTEROL INCREASED [None]
  - DEPRESSION [None]
  - FALL [None]
  - HYPERTENSION [None]
  - MUSCLE SPASMS [None]
